FAERS Safety Report 8362787-5 (Version None)
Quarter: 2012Q2

REPORT INFORMATION
  Report Type: 
  Country: None (occurrence: None)
  Receive Date: 20120516
  Receipt Date: 20120510
  Transmission Date: 20120825
  Serious: Yes (Hospitalization)
  Sender: FDA-Public Use
  Company Number: PHHY2012SG039704

PATIENT
  Age: 62 Year
  Sex: Female

DRUGS (2)
  1. STALEVO 100 [Suspect]
     Indication: PARKINSON'S DISEASE
     Dosage: 4 DF, QID (150 MG TABLET 4 TIMES DAILY)
     Route: 048
     Dates: start: 20110101
  2. STALEVO 100 [Suspect]
     Dosage: 4 DF, QID (100 MG TABLET 4 TIMES DAILY)
     Route: 048
     Dates: start: 20110101

REACTIONS (6)
  - GASTROENTERITIS [None]
  - ELECTROCARDIOGRAM QT PROLONGED [None]
  - ACUTE MYOCARDIAL INFARCTION [None]
  - SEPSIS [None]
  - DEHYDRATION [None]
  - DYSKINESIA [None]
